FAERS Safety Report 8999154 (Version 1)
Quarter: 2013Q1

REPORT INFORMATION
  Report Type: Spontaneous
  Country: DE (occurrence: DE)
  Receive Date: 20130103
  Receipt Date: 20130103
  Transmission Date: 20140127
  Serious: Yes (Hospitalization)
  Sender: FDA-Public Use
  Company Number: DE-ELI_LILLY_AND_COMPANY-DE201212008227

PATIENT
  Age: 46 Year
  Sex: Male

DRUGS (10)
  1. ZYPREXA VELOTAB [Suspect]
     Dosage: 15 MG, EACH MORNING
     Route: 048
  2. ZYPREXA [Suspect]
     Dosage: 2.5 MG, EACH MORNING
     Route: 048
  3. ZYPREXA [Suspect]
     Dosage: 5 MG, EACH EVENING
     Route: 048
  4. GLIANIMON [Concomitant]
     Dosage: 2 MG, UNKNOWN
  5. CONCOR COR [Concomitant]
     Dosage: 2.5 MG, UNKNOWN
  6. SOLIA                              /00570801/ [Concomitant]
     Dosage: 1 DF, UNKNOWN
  7. MACROGOL [Concomitant]
     Dosage: 1 DF, UNKNOWN
  8. DIAZEPAM [Concomitant]
     Dosage: 10 MG, UNKNOWN
  9. AKINETON                                /AUS/ [Concomitant]
     Dosage: 2 MG, UNKNOWN
  10. HYDROTALCIT [Concomitant]
     Dosage: 500 MG, UNKNOWN

REACTIONS (8)
  - Restlessness [Not Recovered/Not Resolved]
  - Visual impairment [Not Recovered/Not Resolved]
  - Chills [Not Recovered/Not Resolved]
  - Muscle spasms [Not Recovered/Not Resolved]
  - Malaise [Not Recovered/Not Resolved]
  - Restless legs syndrome [Not Recovered/Not Resolved]
  - Insomnia [Not Recovered/Not Resolved]
  - Prescribed overdose [Unknown]
